FAERS Safety Report 19381964 (Version 2)
Quarter: 2021Q2

REPORT INFORMATION
  Report Type: Report from Study
  Country: ES (occurrence: ES)
  Receive Date: 20210607
  Receipt Date: 20210630
  Transmission Date: 20210717
  Serious: Yes (Other)
  Sender: FDA-Public Use
  Company Number: ES-ROCHE-2840508

PATIENT
  Age: 79 Year
  Sex: Female
  Weight: 75 kg

DRUGS (5)
  1. LORAZEPAM. [Concomitant]
     Active Substance: LORAZEPAM
  2. OMEPRAZOLE. [Concomitant]
     Active Substance: OMEPRAZOLE
  3. ACETYLSALICYLIC ACID [Concomitant]
     Active Substance: ASPIRIN
  4. ATEZOLIZUMAB. [Suspect]
     Active Substance: ATEZOLIZUMAB
     Indication: BLADDER CANCER
     Dosage: 13/MAY/2021 , DRUG WAS TEMPORARILY INTERRUPTED
     Route: 041
     Dates: start: 20210419, end: 20210603
  5. ATORVASTATINE [Concomitant]
     Active Substance: ATORVASTATIN

REACTIONS (1)
  - Hepatotoxicity [Recovered/Resolved with Sequelae]

NARRATIVE: CASE EVENT DATE: 20210513
